FAERS Safety Report 7233507-2 (Version None)
Quarter: 2011Q1

REPORT INFORMATION
  Report Type: 
  Country: None (occurrence: None)
  Receive Date: 20110119
  Receipt Date: 20110110
  Transmission Date: 20110831
  Serious: Yes (Other)
  Sender: FDA-Public Use
  Company Number: US-RB-019069-11

PATIENT
  Age: 74 Year
  Sex: Male

DRUGS (1)
  1. MUCINEX DM [Suspect]
     Dosage: PATIENT HAS BEEN TAKING PRODUCT FOR THE PAST FOUR DAYS
     Route: 048

REACTIONS (1)
  - HYPERTENSION [None]
